FAERS Safety Report 12432407 (Version 1)
Quarter: 2016Q2

REPORT INFORMATION
  Report Type: Spontaneous
  Country: US (occurrence: None)
  Receive Date: 20160602
  Receipt Date: 20160602
  Transmission Date: 20160815
  Serious: Yes (Life-Threatening, Hospitalization, Disabling, Other)
  Sender: FDA-Public Use
  Company Number: None

PATIENT
  Age: 84 Year
  Sex: Female
  Weight: 77.11 kg

DRUGS (20)
  1. FENTANYL TRANSDERMAL SYSTEM [Concomitant]
     Active Substance: FENTANYL
  2. SUPPORT HOSE VENOUS INSUFFICIENCY [Concomitant]
  3. NEBULIZER [Concomitant]
     Active Substance: DEVICE
  4. CYMBALTA [Concomitant]
     Active Substance: DULOXETINE HYDROCHLORIDE
  5. PANTOPRAZOLE [Concomitant]
     Active Substance: PANTOPRAZOLE SODIUM
  6. MONTELUKAST [Concomitant]
     Active Substance: MONTELUKAST SODIUM
  7. VITAMIN D [Concomitant]
     Active Substance: CHOLECALCIFEROL
  8. AEROBKA [Concomitant]
  9. PERCOCET [Concomitant]
     Active Substance: ACETAMINOPHEN\OXYCODONE HYDROCHLORIDE
  10. XARELTO [Suspect]
     Active Substance: RIVAROXABAN
     Indication: ANTICOAGULANT THERAPY
     Dosage: 1 PILL ONCE BY MOUTH
     Route: 048
     Dates: start: 20160406, end: 20160406
  11. SYNTHROID [Concomitant]
     Active Substance: LEVOTHYROXINE SODIUM
  12. BENADRYL [Concomitant]
     Active Substance: DIPHENHYDRAMINE HYDROCHLORIDE
  13. LOW DOSE ASPIRIN [Concomitant]
     Active Substance: ASPIRIN
  14. LOPRESSOR [Concomitant]
     Active Substance: METOPROLOL TARTRATE
  15. LYRICA [Concomitant]
     Active Substance: PREGABALIN
  16. SKELAXIN [Concomitant]
     Active Substance: METAXALONE
  17. OXYGEN. [Concomitant]
     Active Substance: OXYGEN
  18. MUCINEX [Concomitant]
     Active Substance: GUAIFENESIN
  19. PROCARDIA XL [Concomitant]
     Active Substance: NIFEDIPINE
  20. ATROVENT [Concomitant]
     Active Substance: IPRATROPIUM BROMIDE

REACTIONS (9)
  - Contusion [None]
  - Rash [None]
  - Back pain [None]
  - Headache [None]
  - Epistaxis [None]
  - Erythema [None]
  - Pain [None]
  - Pruritus generalised [None]
  - Hypersensitivity [None]

NARRATIVE: CASE EVENT DATE: 20160406
